FAERS Safety Report 16261556 (Version 5)
Quarter: 2019Q4

REPORT INFORMATION
  Report Type: Spontaneous
  Country: US (occurrence: US)
  Receive Date: 20190501
  Receipt Date: 20191004
  Transmission Date: 20200122
  Serious: No
  Sender: FDA-Public Use
  Company Number: US-SA-2019SA116017

PATIENT
  Age: 73 Year
  Sex: Female
  Weight: 76.19 kg

DRUGS (15)
  1. PRALUENT [Suspect]
     Active Substance: ALIROCUMAB
     Indication: TYPE IIA HYPERLIPIDAEMIA
     Dosage: 150 MG, QOW
     Route: 058
  2. ONDANSETRON [Concomitant]
     Active Substance: ONDANSETRON
  3. PRALUENT [Suspect]
     Active Substance: ALIROCUMAB
     Indication: CARDIOVASCULAR DISORDER
     Dosage: 150 MG, QOW
     Route: 058
  4. AMLODIPINE BESYLATE. [Concomitant]
     Active Substance: AMLODIPINE BESYLATE
  5. CLINDAMYCIN PHOSPHATE. [Concomitant]
     Active Substance: CLINDAMYCIN PHOSPHATE
  6. BUPROPION. [Concomitant]
     Active Substance: BUPROPION
  7. CIPRODEX [CIPROFLOXACIN HYDROCHLORIDE] [Concomitant]
     Active Substance: CIPROFLOXACIN HYDROCHLORIDE
  8. MUPIROCIN. [Concomitant]
     Active Substance: MUPIROCIN
  9. ALPRAZOLAM. [Concomitant]
     Active Substance: ALPRAZOLAM
  10. TYLENOL [Concomitant]
     Active Substance: ACETAMINOPHEN
  11. FLUOCINONIDE. [Concomitant]
     Active Substance: FLUOCINONIDE
  12. TRIAMCINOLONE ACETONIDE. [Concomitant]
     Active Substance: TRIAMCINOLONE ACETONIDE
  13. AZITHROMYCIN ANHYDROUS. [Concomitant]
     Active Substance: AZITHROMYCIN ANHYDROUS
  14. REPATHA [Concomitant]
     Active Substance: EVOLOCUMAB
  15. BREO ELLIPTA [Concomitant]
     Active Substance: FLUTICASONE FUROATE\VILANTEROL TRIFENATATE

REACTIONS (9)
  - Blood cholesterol increased [Unknown]
  - Device malfunction [Unknown]
  - Injection site pruritus [Unknown]
  - Malaise [Unknown]
  - Injection site bruising [Unknown]
  - Viral infection [Unknown]
  - Sinusitis [Not Recovered/Not Resolved]
  - Drug dose omission by device [Unknown]
  - Drug ineffective [Unknown]
